FAERS Safety Report 7563095-2 (Version None)
Quarter: 2011Q2

REPORT INFORMATION
  Report Type: 
  Country: None (occurrence: None)
  Receive Date: 20110622
  Receipt Date: 20110610
  Transmission Date: 20111010
  Serious: Yes (Other)
  Sender: FDA-Public Use
  Company Number: US-BIOALLPH-US11S00020

PATIENT
  Age: 60 Year
  Sex: Male

DRUGS (2)
  1. ORAVIG [Suspect]
     Indication: OROPHARYNGEAL PAIN
     Dates: start: 20110301, end: 20110301
  2. ALBUTEROL [Concomitant]
     Indication: DYSPNOEA
     Dosage: 3 TIMES A DAY
     Route: 055

REACTIONS (5)
  - BLINDNESS UNILATERAL [None]
  - EYE SWELLING [None]
  - EYE PAIN [None]
  - CATARACT [None]
  - VISUAL FIELD DEFECT [None]
